FAERS Safety Report 10975182 (Version 4)
Quarter: 2015Q2

REPORT INFORMATION
  Report Type: Report from Study
  Country: US (occurrence: US)
  Receive Date: 20150401
  Receipt Date: 20150526
  Transmission Date: 20150821
  Serious: Yes (Hospitalization, Other)
  Sender: FDA-Public Use
  Company Number: US-BAYER-2015-090537

PATIENT
  Age: 44 Year
  Sex: Male

DRUGS (9)
  1. STIVARGA [Suspect]
     Active Substance: REGORAFENIB
     Indication: COLON CANCER
     Dosage: 4 TABLETS DAILY
     Route: 048
     Dates: start: 20150318, end: 20150321
  2. STIVARGA [Suspect]
     Active Substance: REGORAFENIB
     Indication: COLON CANCER
     Dosage: 2 TABLETS DAILY
     Route: 048
     Dates: start: 20150331, end: 20150512
  3. METOPROLOL [Concomitant]
     Active Substance: METOPROLOL
  4. STIVARGA [Suspect]
     Active Substance: REGORAFENIB
     Indication: COLON CANCER
     Dosage: 3 TABLETS DAILY
     Route: 048
     Dates: start: 20150331
  5. RUXOLITINIB PHOSPHATE [Concomitant]
     Active Substance: RUXOLITINIB PHOSPHATE
     Dosage: 3 TABLETS TWICE DAY
  6. STIVARGA [Suspect]
     Active Substance: REGORAFENIB
     Indication: COLON CANCER
     Dosage: 2 TABLETS DAIY
     Route: 048
     Dates: start: 20150401, end: 20150403
  7. STIVARGA [Suspect]
     Active Substance: REGORAFENIB
     Indication: COLON CANCER
     Dosage: 1 TABLET DAILY
     Route: 048
     Dates: start: 20150404
  8. STIVARGA [Suspect]
     Active Substance: REGORAFENIB
     Indication: COLON CANCER
     Dosage: 2 TABLETS DAILY
     Route: 048
     Dates: start: 20150318, end: 20150321
  9. LOSARTAN [Concomitant]
     Active Substance: LOSARTAN

REACTIONS (13)
  - Abdominal pain [Not Recovered/Not Resolved]
  - Decreased appetite [Not Recovered/Not Resolved]
  - Colon cancer [None]
  - Palmar-plantar erythrodysaesthesia syndrome [Not Recovered/Not Resolved]
  - Blood pressure increased [Recovering/Resolving]
  - Ocular icterus [Recovered/Resolved]
  - Tremor [Not Recovered/Not Resolved]
  - Dysphonia [Not Recovered/Not Resolved]
  - Fatigue [Not Recovered/Not Resolved]
  - Asthenia [Not Recovered/Not Resolved]
  - Headache [Not Recovered/Not Resolved]
  - Yellow skin [Recovered/Resolved]
  - Back pain [Not Recovered/Not Resolved]

NARRATIVE: CASE EVENT DATE: 20150319
